FAERS Safety Report 24462887 (Version 1)
Quarter: 2024Q4

REPORT INFORMATION
  Report Type: Spontaneous
  Country: JP (occurrence: JP)
  Receive Date: 20241018
  Receipt Date: 20241018
  Transmission Date: 20250114
  Serious: Yes (Other)
  Sender: NOVARTIS
  Company Number: JP-002147023-NVSJ2024JP012154

PATIENT
  Age: 53 Year
  Sex: Female

DRUGS (1)
  1. INDACATEROL [Suspect]
     Active Substance: INDACATEROL
     Indication: Product used for unknown indication
     Dosage: UNK
     Route: 055

REACTIONS (1)
  - Eosinophilic pneumonia chronic [Unknown]
